FAERS Safety Report 8941282 (Version 1)
Quarter: 2012Q4

REPORT INFORMATION
  Report Type: 
  Country: GB (occurrence: GB)
  Receive Date: 20121203
  Receipt Date: 20121203
  Transmission Date: 20130627
  Serious: Yes (Hospitalization, Other)
  Sender: FDA-Public Use
  Company Number: GB-ELI_LILLY_AND_COMPANY-GB201211007391

PATIENT
  Age: 73 Year
  Sex: Female

DRUGS (2)
  1. FORSTEO [Suspect]
     Indication: OSTEOPOROSIS
     Dosage: 20 ug, qd
     Route: 058
     Dates: start: 20110621, end: 201112
  2. FORSTEO [Suspect]
     Dosage: 20 ug, qd
     Route: 058
     Dates: start: 20121108

REACTIONS (2)
  - Fall [Unknown]
  - Uterine haemorrhage [Unknown]
